FAERS Safety Report 9988573 (Version 1)
Quarter: 2014Q1

REPORT INFORMATION
  Report Type: Spontaneous
  Country: US (occurrence: US)
  Receive Date: 20140310
  Receipt Date: 20140310
  Transmission Date: 20141002
  Serious: No
  Sender: FDA-Public Use
  Company Number: US-009507513-1402USA013409

PATIENT
  Age: 55 Year
  Sex: Male

DRUGS (5)
  1. REMERON [Suspect]
     Indication: DEPRESSION
     Dosage: UNK
     Route: 048
     Dates: start: 201301, end: 201312
  2. REMERON [Suspect]
     Dosage: UNK
     Route: 048
     Dates: start: 201401
  3. MIRTAZAPINE [Suspect]
     Indication: DEPRESSION
  4. XANAX [Concomitant]
  5. ANTACID (CALCIUM CARBONATE) [Concomitant]

REACTIONS (13)
  - Nasal congestion [Recovered/Resolved]
  - Dyspnoea [Recovered/Resolved]
  - Increased upper airway secretion [Recovered/Resolved]
  - Nasal oedema [Recovered/Resolved]
  - Tonsillar hypertrophy [Recovered/Resolved]
  - Mouth breathing [Recovered/Resolved]
  - Tonsillar hypertrophy [Not Recovered/Not Resolved]
  - Nasal oedema [Not Recovered/Not Resolved]
  - Increased upper airway secretion [Not Recovered/Not Resolved]
  - Dyspnoea [Not Recovered/Not Resolved]
  - Nasal congestion [Not Recovered/Not Resolved]
  - Mouth breathing [Not Recovered/Not Resolved]
  - Drug ineffective [Unknown]
